FAERS Safety Report 8046101 (Version 3)
Quarter: 2012Q4

REPORT INFORMATION
  Report Type: 
  Country: US (occurrence: US)
  Receive Date: 20110714
  Receipt Date: 20121220
  Transmission Date: 20130627
  Serious: Yes (Death, Hospitalization, Other)
  Sender: FDA-Public Use
  Company Number: US-PFIZER INC-2003116355

PATIENT
  Age: 25 Year
  Sex: Female

DRUGS (3)
  1. IBUPROFEN [Suspect]
     Indication: ATTEMPTED SUICIDE
     Dosage: UNK
     Route: 048
  2. PSEUDOEPHEDRINE [Suspect]
     Indication: SUICIDE ATTEMPT
     Dosage: UNK
     Route: 048
  3. DIPHENHYDRAMINE [Suspect]
     Indication: SUICIDE ATTEMPT
     Dosage: UNK
     Route: 048

REACTIONS (10)
  - Completed suicide [Fatal]
  - Cardio-respiratory arrest [Fatal]
  - Coma [Fatal]
  - Tachyarrhythmia [Fatal]
  - Brain hypoxia [Fatal]
  - Brain oedema [Fatal]
  - Pulse absent [Fatal]
  - Convulsion [Fatal]
  - Brain death [Fatal]
  - Overdose [Fatal]
